FAERS Safety Report 5405667-7 (Version None)
Quarter: 2007Q3

REPORT INFORMATION
  Report Type: 
  Country: None (occurrence: None)
  Receive Date: 20070806
  Receipt Date: 20070801
  Transmission Date: 20080115
  Serious: Yes (Hospitalization, Other)
  Sender: FDA-Public Use
  Company Number: PHEH2007US10599

PATIENT
  Age: 64 Year
  Sex: Male
  Weight: 137 kg

DRUGS (11)
  1. ZOLEDRONIC ACID [Suspect]
     Indication: PROSTATE CANCER
     Dosage: UNK, UNK
     Route: 042
     Dates: start: 20070601, end: 20070601
  2. DOCUSATE [Concomitant]
     Dosage: UNK, UNK
  3. ESOMEPRAZOLE MAGNESIUM [Concomitant]
     Dosage: UNK, UNK
  4. OXYCODONE HCL [Concomitant]
     Dosage: UNK, UNK
  5. LEVOFLOXACIN [Concomitant]
     Dosage: UNK, UNK
  6. CALCIUM WITH VITAMIN D [Concomitant]
     Dosage: UNK, UNK
  7. ZOLPIDEM TARTRATE [Concomitant]
     Dosage: UNK, UNK
  8. BISACODYL [Concomitant]
     Dosage: UNK, UNK
  9. FUROSEMIDE [Concomitant]
     Dosage: UNK, UNK
  10. PREGABALIN [Concomitant]
     Dosage: UNK, UNK
  11. CYCLOBENZAPRINE HCL [Concomitant]
     Dosage: UNK, UNK

REACTIONS (2)
  - HYPOXIA [None]
  - INTERSTITIAL LUNG DISEASE [None]
